FAERS Safety Report 17186307 (Version 1)
Quarter: 2019Q4

REPORT INFORMATION
  Report Type: Report from Study
  Country: US (occurrence: US)
  Receive Date: 20191220
  Receipt Date: 20191220
  Transmission Date: 20200122
  Serious: Yes (Other)
  Sender: FDA-Public Use
  Company Number: NVSC2019US074918

PATIENT
  Sex: Female

DRUGS (3)
  1. WELLBUTRIN [Suspect]
     Active Substance: BUPROPION HYDROCHLORIDE
     Indication: DEPRESSION
     Route: 065
  2. LEXAPRO [Suspect]
     Active Substance: ESCITALOPRAM OXALATE
     Indication: DEPRESSION
     Route: 065
  3. GILENYA [Suspect]
     Active Substance: FINGOLIMOD HYDROCHLORIDE
     Indication: MULTIPLE SCLEROSIS
     Dosage: 0.5 MG, QD
     Route: 048

REACTIONS (11)
  - Blindness [Unknown]
  - Vision blurred [Unknown]
  - Arthralgia [Unknown]
  - Self-injurious ideation [Unknown]
  - Mental disorder [Unknown]
  - Visual impairment [Unknown]
  - Weight decreased [Unknown]
  - Back pain [Unknown]
  - Stress [Unknown]
  - Depression [Unknown]
  - Suicide attempt [Unknown]
